FAERS Safety Report 4519191-7 (Version None)
Quarter: 2004Q4

REPORT INFORMATION
  Report Type: 
  Country: None (occurrence: None)
  Receive Date: 20041201
  Receipt Date: 20041122
  Transmission Date: 20050328
  Serious: No
  Sender: FDA-Public Use
  Company Number: 2004AC00814

PATIENT
  Sex: Female

DRUGS (2)
  1. ZOLADEX [Suspect]
     Dosage: 10.8 MG ONCE SQ
     Route: 058
     Dates: start: 20040105
  2. LIVIAL [Concomitant]

REACTIONS (4)
  - ARTHRALGIA [None]
  - FATIGUE [None]
  - JOINT CREPITATION [None]
  - TENDON DISORDER [None]
